FAERS Safety Report 15918571 (Version 2)
Quarter: 2019Q1

REPORT INFORMATION
  Report Type: Spontaneous
  Country: JP (occurrence: JP)
  Receive Date: 20190205
  Receipt Date: 20190222
  Transmission Date: 20190417
  Serious: Yes (Death, Other)
  Sender: FDA-Public Use
  Company Number: JP-009507513-1901JPN003103J

PATIENT
  Age: 55 Year
  Sex: Female

DRUGS (7)
  1. CELLCEPT [Concomitant]
     Active Substance: MYCOPHENOLATE MOFETIL\MYCOPHENOLATE MOFETIL HYDROCHLORIDE
     Dosage: 1500 MILLIGRAM
     Route: 065
  2. PREVYMIS [Suspect]
     Active Substance: LETERMOVIR
     Indication: ANTIVIRAL PROPHYLAXIS
     Dosage: 480 MILLIGRAM, QD
     Route: 041
     Dates: start: 20181015, end: 20181019
  3. NEUTROGIN [Concomitant]
     Active Substance: LENOGRASTIM
     Indication: NEUTROPHIL COUNT DECREASED
     Dosage: 250 MICROGRAM, QD
     Route: 058
     Dates: start: 20181009, end: 20181024
  4. CEFEPIME [Concomitant]
     Active Substance: CEFEPIME HYDROCHLORIDE
     Indication: FEBRILE NEUTROPENIA
     Dosage: 2 GRAM, BID
     Route: 041
     Dates: start: 20181007, end: 20181023
  5. PREVYMIS [Suspect]
     Active Substance: LETERMOVIR
     Indication: ANTIVIRAL PROPHYLAXIS
     Dosage: 480 MILLIGRAM, QD
     Route: 048
     Dates: start: 20181004, end: 20181014
  6. PROGRAF [Concomitant]
     Active Substance: TACROLIMUS\TACROLIMUS ANHYDROUS
     Indication: IMMUNOSUPPRESSION
     Dosage: 0.96 MICROGRAM, QD
     Route: 041
     Dates: start: 20181009, end: 20181024
  7. CANCIDAS [Suspect]
     Active Substance: CASPOFUNGIN ACETATE
     Indication: FEBRILE NEUTROPENIA
     Dosage: 50 MILLIGRAM, QD
     Route: 041
     Dates: start: 20181004, end: 20181023

REACTIONS (2)
  - Stenotrophomonas infection [Fatal]
  - Bacterial sepsis [Fatal]

NARRATIVE: CASE EVENT DATE: 20181024
